FAERS Safety Report 9247745 (Version 1)
Quarter: 2013Q1

REPORT INFORMATION
  Report Type: Spontaneous
  Country: US (occurrence: None)
  Receive Date: 20121130
  Receipt Date: 20121130
  Transmission Date: 20140127
  Serious: Yes (Other)
  Sender: FDA-Public Use
  Company Number: 345693

PATIENT
  Age: 76 Year
  Sex: Female
  Weight: 74.8 kg

DRUGS (8)
  1. NOVOLOG (INSULIN ASPART) SOLUTION FOR INJECTION, 100U/ML [Suspect]
     Dosage: SLIDING SCALE , SUBCUTAN-PUMP?
     Route: 058
  2. COZAAR (LOSARTAN POTASSIUM) (50 MILLIGRAM, TABLETS) (LOSARTAN POTASSIUM) [Concomitant]
  3. ELAVIL /00002202/ (AMITRIPTYLINE HYDROCHLORIDE) [Concomitant]
  4. LASIX /00032601/ (FUROSEMIDE) UNK, UNKUNK [Concomitant]
  5. ATENOLOL (ATENOLOL) [Concomitant]
  6. ASPIRIN (ACETYLSALICYLIC ACID) [Concomitant]
  7. MAGNESIUM OXIDE (MAGNESIUM OXIDE) [Concomitant]
  8. ZOCOR (SIMVASTATIN) [Concomitant]

REACTIONS (1)
  - Blood glucose decreased [None]
